FAERS Safety Report 4718192-3 (Version None)
Quarter: 2005Q3

REPORT INFORMATION
  Report Type: 
  Country: None (occurrence: None)
  Receive Date: 20050720
  Receipt Date: 20050713
  Transmission Date: 20060218
  Serious: Yes (Death)
  Sender: FDA-Public Use
  Company Number: RO-ROCHE-410749

PATIENT
  Sex: Female

DRUGS (2)
  1. PEGASYS [Suspect]
     Dosage: STRENGTH REPORTED AS 180 MCG/PFS.
     Route: 058
     Dates: start: 20050115
  2. COPEGUS [Concomitant]
     Route: 048

REACTIONS (1)
  - ROAD TRAFFIC ACCIDENT [None]
